FAERS Safety Report 10025977 (Version 1)
Quarter: 2014Q1

REPORT INFORMATION
  Report Type: Spontaneous
  Country: CA (occurrence: None)
  Receive Date: 20140318
  Receipt Date: 20140318
  Transmission Date: 20141002
  Serious: Yes (Death, Other)
  Sender: FDA-Public Use
  Company Number: 152816

PATIENT
  Age: 32 Month
  Sex: Male

DRUGS (2)
  1. CARBOPLATIN [Suspect]
     Indication: ATYPICAL TERATOID/RHABDOID TUMOUR OF CNS
     Dosage: 17MG/KG/DAY FOR 2 DAYS ON DAY 3 AND 2 PRIOR TO AUTOLOGOUS STEM CELL
  2. THIOTEPA [Suspect]
     Indication: ATYPICAL TERATOID/RHABDOID TUMOUR OF CNS

REACTIONS (3)
  - Pulmonary vasculitis [None]
  - Pulmonary arterial hypertension [None]
  - Cardiac failure congestive [None]
